FAERS Safety Report 7225719-9 (Version None)
Quarter: 2011Q1

REPORT INFORMATION
  Report Type: 
  Country: None (occurrence: None)
  Receive Date: 20110110
  Receipt Date: 20110110
  Transmission Date: 20110831
  Serious: Yes (Other)
  Sender: FDA-Public Use
  Company Number: None

PATIENT
  Age: 53 Year
  Sex: Female
  Weight: 58.9676 kg

DRUGS (2)
  1. COMBIGAN [Suspect]
     Indication: GLAUCOMA
     Dosage: USE AS DIRECTED OPHTHALMIC
     Route: 047
     Dates: start: 20101227, end: 20101228
  2. ALPHAGAN P [Suspect]
     Indication: GLAUCOMA
     Dosage: 1 DROP OU TWICE DAILY OPHTHALMIC
     Route: 047
     Dates: start: 20101015, end: 20101016

REACTIONS (3)
  - OCULAR HYPERAEMIA [None]
  - EYE PRURITUS [None]
  - EYE PAIN [None]
